FAERS Safety Report 17428666 (Version 4)
Quarter: 2022Q1

REPORT INFORMATION
  Report Type: Spontaneous
  Country: FR (occurrence: FR)
  Receive Date: 20200217
  Receipt Date: 20220209
  Transmission Date: 20220423
  Serious: Yes (Hospitalization, Other)
  Sender: FDA-Public Use
  Company Number: FR-009507513-2002FRA006032

PATIENT
  Sex: Male
  Weight: 97 kg

DRUGS (4)
  1. JANUVIA [Suspect]
     Active Substance: SITAGLIPTIN PHOSPHATE
     Indication: Diabetes mellitus
     Dosage: 1 TABLET (100MG) QD  FOR 3 MONTHS
     Route: 048
     Dates: start: 201910
  2. GLUCOPHAGE [Suspect]
     Active Substance: METFORMIN HYDROCHLORIDE
     Indication: Diabetes mellitus
     Dosage: 1 TABLET (1000MG) TID DURING AND AT THE END OF MEALS WITH A GLASS OF WATER FOR 3 MONTHS
     Route: 048
     Dates: start: 201910
  3. GLYBURIDE [Suspect]
     Active Substance: GLYBURIDE
     Indication: Diabetes mellitus
     Dosage: 1 TABLET (2.5MG) BID IMMEDIATELY BEFORE MEALS WITH HALF A GLASS OF WATER
     Route: 048
     Dates: start: 201910
  4. LOSARTAN POTASSIUM AND HYDROCHLOROTHIAZIDE [Concomitant]
     Active Substance: HYDROCHLOROTHIAZIDE\LOSARTAN POTASSIUM
     Dosage: 1 DOSAGE FORM (1 DF), QD

REACTIONS (5)
  - Cardiac failure [Unknown]
  - Lung disorder [Unknown]
  - General physical health deterioration [Unknown]
  - Congestive cardiomyopathy [Unknown]
  - Coronary artery disease [Unknown]

NARRATIVE: CASE EVENT DATE: 20191001
